FAERS Safety Report 21008952 (Version 1)
Quarter: 2022Q2

REPORT INFORMATION
  Report Type: Report from Study
  Country: BE (occurrence: BE)
  Receive Date: 20220627
  Receipt Date: 20220627
  Transmission Date: 20220721
  Serious: Yes (Hospitalization, Other)
  Sender: FDA-Public Use
  Company Number: BE-INCYTE CORPORATION-2020IN005307

PATIENT
  Age: 26 Year
  Sex: Male

DRUGS (16)
  1. PONATINIB [Interacting]
     Active Substance: PONATINIB
     Indication: Chronic myeloid leukaemia
     Dosage: 45 MILLIGRAM, QD
     Route: 048
     Dates: start: 20200110, end: 20200119
  2. PONATINIB [Interacting]
     Active Substance: PONATINIB
     Dosage: 15 MILLIGRAM, QD
     Route: 048
     Dates: start: 20200120
  3. DIFLUCAN [Interacting]
     Active Substance: FLUCONAZOLE
     Indication: Product used for unknown indication
     Dosage: 200 MILLIGRAM, QD
     Route: 065
     Dates: end: 20200120
  4. FOLIC ACID [Concomitant]
     Active Substance: FOLIC ACID
     Indication: Product used for unknown indication
     Dosage: 4 MILLIGRAM, QD
     Route: 065
  5. NEORAL [Concomitant]
     Active Substance: CYCLOSPORINE
     Indication: Product used for unknown indication
     Dosage: 50 MILLIGRAM, BID
     Route: 065
     Dates: end: 202001
  6. NEORAL [Concomitant]
     Active Substance: CYCLOSPORINE
     Dosage: 75 MILLIGRAM, BID
     Route: 065
     Dates: start: 20200120, end: 202001
  7. NEORAL [Concomitant]
     Active Substance: CYCLOSPORINE
     Dosage: UNK
     Route: 065
     Dates: start: 20200131, end: 20200219
  8. PERIO AID                          /00133002/ [Concomitant]
     Indication: Product used for unknown indication
     Dosage: UNK, BID
     Route: 065
  9. ZOLPIDEM TARTRATE [Concomitant]
     Active Substance: ZOLPIDEM TARTRATE
     Indication: Product used for unknown indication
     Dosage: 10 MILLIGRAM, QD
     Route: 065
  10. BILASTINE [Concomitant]
     Active Substance: BILASTINE
     Indication: Product used for unknown indication
     Dosage: 20 MILLIGRAM, BID
     Route: 065
     Dates: start: 20200120, end: 20200210
  11. MOVICOL                            /01749801/ [Concomitant]
     Indication: Product used for unknown indication
     Dosage: UNK
     Route: 065
  12. PANTOMED                           /00178901/ [Concomitant]
     Indication: Product used for unknown indication
     Dosage: 20 MILLIGRAM, QD
     Route: 065
  13. SULFAMETHOXAZOLE AND TRIMETHOPRIM [Concomitant]
     Active Substance: SULFAMETHOXAZOLE\TRIMETHOPRIM
     Indication: Product used for unknown indication
     Dosage: UNK, 3/WEEK
     Route: 065
  14. LITICAN                            /00690801/ [Concomitant]
     Indication: Product used for unknown indication
     Dosage: 50 MILLIGRAM, TID
     Route: 065
     Dates: start: 20200120, end: 202001
  15. LITICAN                            /00690801/ [Concomitant]
     Dosage: 50 MILLIGRAM, QID
     Route: 065
     Dates: start: 20200129
  16. IMODIUM [Concomitant]
     Active Substance: LOPERAMIDE HYDROCHLORIDE
     Indication: Product used for unknown indication
     Dosage: UNK
     Route: 065
     Dates: start: 20200210

REACTIONS (6)
  - Rash [Recovered/Resolved]
  - Hepatitis [Recovered/Resolved]
  - Hepatic function abnormal [Recovered/Resolved]
  - Vomiting [Recovered/Resolved]
  - Diarrhoea [Recovered/Resolved]
  - Pyrexia [Recovered/Resolved]

NARRATIVE: CASE EVENT DATE: 20200116
